FAERS Safety Report 7587757-6 (Version None)
Quarter: 2011Q3

REPORT INFORMATION
  Report Type: 
  Country: None (occurrence: None)
  Receive Date: 20110705
  Receipt Date: 20110624
  Transmission Date: 20111222
  Serious: Yes (Hospitalization)
  Sender: FDA-Public Use
  Company Number: US-BIOGENIDEC-2011BI018913

PATIENT
  Age: 29 Year
  Sex: Female

DRUGS (2)
  1. TYSABRI [Suspect]
     Indication: MULTIPLE SCLEROSIS
     Route: 042
     Dates: start: 20090813
  2. TYSABRI [Suspect]
     Route: 042
     Dates: start: 20080819, end: 20081121

REACTIONS (3)
  - INFLAMMATION [None]
  - JOINT LOCK [None]
  - SPEECH DISORDER [None]
